FAERS Safety Report 5471755-2 (Version None)
Quarter: 2007Q3

REPORT INFORMATION
  Report Type: 
  Country: None (occurrence: None)
  Receive Date: 20070928
  Receipt Date: 20070507
  Transmission Date: 20080115
  Serious: No
  Sender: FDA-Public Use
  Company Number: US-BRISTOL-MYERS SQUIBB COMPANY-13771613

PATIENT
  Age: 50 Year
  Sex: Male
  Weight: 118 kg

DRUGS (8)
  1. DEFINITY [Suspect]
     Indication: ECHOCARDIOGRAM
     Route: 042
     Dates: start: 20070507, end: 20070507
  2. COUMADIN [Concomitant]
  3. LOPRESSOR [Concomitant]
  4. LASIX [Concomitant]
  5. POTASSIUM CHLORIDE [Concomitant]
  6. ASPIRIN [Concomitant]
  7. COLACE [Concomitant]
  8. KEPPRA [Concomitant]

REACTIONS (1)
  - BACK PAIN [None]
